FAERS Safety Report 22081989 (Version 1)
Quarter: 2023Q1

REPORT INFORMATION
  Report Type: Spontaneous
  Country: CA (occurrence: CA)
  Receive Date: 20230310
  Receipt Date: 20230310
  Transmission Date: 20230418
  Serious: Yes (Other)
  Sender: FDA-Public Use
  Company Number: CA-NOVOPROD-1026819

PATIENT
  Age: 82 Year
  Sex: Male
  Weight: 62 kg

DRUGS (1)
  1. TRESIBA [Suspect]
     Active Substance: INSULIN DEGLUDEC
     Indication: Type 2 diabetes mellitus
     Dosage: UNK QD (AT NIGHT)
     Route: 058
     Dates: start: 2022

REACTIONS (1)
  - Chorea [Recovered/Resolved]

NARRATIVE: CASE EVENT DATE: 20221123
